FAERS Safety Report 7427611 (Version 7)
Quarter: 2013Q2

REPORT INFORMATION
  Report Type: Report from Study
  Country: JP (occurrence: JP)
  Receive Date: 20100622
  Receipt Date: 20130424
  Transmission Date: 20140414
  Serious: Yes (Hospitalization)
  Sender: FDA-Public Use
  Company Number: JP-ROCHE-709322

PATIENT
  Age: 18 Year
  Sex: Female
  Weight: 40 kg

DRUGS (54)
  1. TOCILIZUMAB [Suspect]
     Indication: JUVENILE IDIOPATHIC ARTHRITIS
     Route: 041
     Dates: start: 20090818, end: 20100610
  2. TOCILIZUMAB [Suspect]
     Route: 041
     Dates: start: 20100716, end: 20100716
  3. PREDNISOLONE [Suspect]
     Indication: JUVENILE IDIOPATHIC ARTHRITIS
     Route: 048
     Dates: start: 20090512, end: 20090608
  4. PREDNISOLONE [Suspect]
     Route: 048
     Dates: start: 20090609, end: 20090701
  5. PREDNISOLONE [Suspect]
     Route: 048
     Dates: start: 20090702, end: 20090729
  6. PREDNISOLONE [Suspect]
     Route: 048
     Dates: start: 20090730, end: 20090826
  7. PREDNISOLONE [Suspect]
     Route: 048
     Dates: start: 20090827, end: 20090923
  8. PREDNISOLONE [Suspect]
     Route: 048
     Dates: start: 20090924, end: 20100602
  9. PREDNISOLONE [Suspect]
     Route: 048
     Dates: start: 20100617, end: 20100623
  10. PREDNISOLONE [Suspect]
     Route: 048
     Dates: start: 20100627, end: 20100629
  11. PREDNISOLONE [Suspect]
     Dosage: STOP DATE: JULY 2010
     Route: 048
  12. PREDNISOLONE [Suspect]
     Route: 048
  13. DEXAMETHASONE PALMITATE [Suspect]
     Indication: JUVENILE IDIOPATHIC ARTHRITIS
     Route: 041
     Dates: start: 20100602, end: 20100602
  14. DEXAMETHASONE PALMITATE [Suspect]
     Route: 041
     Dates: start: 20100603, end: 20100604
  15. DEXAMETHASONE PALMITATE [Suspect]
     Route: 041
     Dates: start: 20100605, end: 20100605
  16. DEXAMETHASONE PALMITATE [Suspect]
     Route: 041
     Dates: start: 20100606, end: 20100607
  17. DEXAMETHASONE PALMITATE [Suspect]
     Route: 041
     Dates: start: 20100608, end: 20100610
  18. DEXAMETHASONE PALMITATE [Suspect]
     Dosage: STOP DATE: JUNE 2010. DOSAGE IS UNCERTAIN
     Route: 041
  19. DEXAMETHASONE PALMITATE [Suspect]
     Route: 041
     Dates: start: 20100718, end: 20100720
  20. DEXAMETHASONE PALMITATE [Suspect]
     Route: 041
     Dates: start: 20100721, end: 20100722
  21. DEXAMETHASONE PALMITATE [Suspect]
     Route: 041
     Dates: start: 20100726, end: 20100731
  22. SANDIMMUN [Suspect]
     Indication: JUVENILE IDIOPATHIC ARTHRITIS
     Route: 041
     Dates: start: 20100602, end: 20100605
  23. SANDIMMUN [Suspect]
     Route: 041
     Dates: start: 20100614, end: 20100617
  24. SANDIMMUN [Suspect]
     Route: 041
     Dates: start: 20100617, end: 20100618
  25. SANDIMMUN [Suspect]
     Route: 041
     Dates: start: 20100618, end: 20100619
  26. SANDIMMUN [Suspect]
     Route: 041
     Dates: start: 20100628, end: 20100629
  27. SANDIMMUN [Suspect]
     Route: 041
  28. NEORAL [Suspect]
     Indication: JUVENILE IDIOPATHIC ARTHRITIS
     Dosage: FORM: PER ORAL AGENT
     Route: 048
  29. NEORAL [Suspect]
     Dosage: FORM: PER ORAL AGENT
     Route: 048
     Dates: start: 20091113, end: 20091210
  30. NEORAL [Suspect]
     Dosage: FORM: PER ORAL AGENT
     Route: 048
     Dates: start: 20091211, end: 20100107
  31. NEORAL [Suspect]
     Dosage: FORM: PER ORAL AGENT
     Route: 048
     Dates: start: 20100108, end: 20100204
  32. NEORAL [Suspect]
     Dosage: FORM: PER ORAL AGENT
     Route: 048
     Dates: start: 20100205, end: 20100304
  33. NEORAL [Suspect]
     Dosage: FORM: PER ORAL AGENT
     Route: 048
     Dates: start: 20100305, end: 20100401
  34. NEORAL [Suspect]
     Dosage: FORM: PER ORAL AGENT
     Route: 048
     Dates: start: 20100402, end: 20100429
  35. NEORAL [Suspect]
     Dosage: FORM: PER ORAL AGENT
     Route: 048
     Dates: start: 20100430, end: 20100530
  36. NEORAL [Suspect]
     Dosage: FORM: PER ORAL AGENT
     Route: 048
     Dates: start: 20100531, end: 20100601
  37. NEORAL [Suspect]
     Dosage: FORM: PER ORAL AGENT
     Route: 048
     Dates: start: 20100602, end: 20100602
  38. NEORAL [Suspect]
     Route: 048
     Dates: start: 20100605, end: 20100614
  39. NEORAL [Suspect]
     Route: 048
     Dates: start: 20100619, end: 20100628
  40. SOLU-MEDROL [Suspect]
     Indication: JUVENILE IDIOPATHIC ARTHRITIS
     Route: 041
     Dates: start: 20100614, end: 20100616
  41. SOLU-MEDROL [Suspect]
     Route: 041
     Dates: start: 20100624, end: 20100626
  42. BEZATOL SR [Concomitant]
     Dosage: FORM: SUSTAINED RELEASE TABLET
     Route: 048
  43. BEZATOL SR [Concomitant]
     Dosage: FORM: SUSTAINED RELEASE TABLET
     Route: 048
     Dates: start: 20100607, end: 20100629
  44. GLAKAY [Concomitant]
     Route: 048
  45. GLAKAY [Concomitant]
     Route: 048
     Dates: start: 20100607, end: 20100629
  46. ULCERLMIN [Concomitant]
     Indication: PROPHYLAXIS
     Route: 048
  47. ULCERLMIN [Concomitant]
     Route: 048
     Dates: start: 20090827, end: 20090928
  48. SHIN-BIOFERMIN S [Concomitant]
     Indication: PROPHYLAXIS
     Dosage: FORM:PERORAL AGENT
     Route: 048
  49. SHIN-BIOFERMIN S [Concomitant]
     Route: 048
     Dates: start: 20090827, end: 20090928
  50. SHIN-BIOFERMIN S [Concomitant]
     Route: 048
     Dates: start: 20100617, end: 20100629
  51. TRYPTANOL [Concomitant]
     Route: 048
  52. TRYPTANOL [Concomitant]
     Dosage: DOSE FORM: PERORAL AGENT
     Route: 048
     Dates: start: 20090827, end: 20090928
  53. FAMOTIDINE [Concomitant]
     Dosage: DOSE FORM: PERORAL AGENT
     Route: 048
     Dates: start: 20100602, end: 20100629
  54. SELBEX [Concomitant]
     Route: 048
     Dates: start: 20100617, end: 20100629

REACTIONS (2)
  - Histiocytosis haematophagic [Recovering/Resolving]
  - Sepsis [Recovered/Resolved]
